FAERS Safety Report 5369500-4 (Version None)
Quarter: 2007Q2

REPORT INFORMATION
  Report Type: 
  Country: None (occurrence: None)
  Receive Date: 20070625
  Receipt Date: 20070618
  Transmission Date: 20071010
  Serious: Yes (Hospitalization)
  Sender: FDA-Public Use
  Company Number: A0645030A

PATIENT
  Sex: Female
  Weight: 50 kg

DRUGS (16)
  1. ADVAIR DISKUS 100/50 [Suspect]
     Indication: BRONCHITIS
     Dosage: 1PUFF TWICE PER DAY
     Route: 055
  2. SEREVENT [Suspect]
     Dosage: 1PUFF TWICE PER DAY
     Route: 055
  3. SEREVENT [Suspect]
     Indication: BRONCHITIS
     Route: 055
  4. FLOVENT [Suspect]
     Route: 055
  5. NEBULIZER [Concomitant]
  6. QVAR 40 [Concomitant]
     Dosage: 2PUFF PER DAY
  7. ALBUTEROL [Concomitant]
  8. MULTI-VITAMIN [Concomitant]
  9. ROZEREM [Concomitant]
  10. ATROVENT [Concomitant]
  11. XANAX [Concomitant]
  12. PULMICORT RESPULES [Concomitant]
     Dates: start: 20040801
  13. SYNTHROID [Concomitant]
  14. DUONEB [Concomitant]
  15. DUONEB [Concomitant]
  16. INTAL [Concomitant]
     Dates: start: 20040501

REACTIONS (12)
  - BRONCHITIS [None]
  - BRONCHOSPASM [None]
  - COUGH [None]
  - DRUG INEFFECTIVE [None]
  - DRUG INTOLERANCE [None]
  - DYSPHONIA [None]
  - DYSPNOEA [None]
  - ILL-DEFINED DISORDER [None]
  - MYALGIA [None]
  - ORAL PAIN [None]
  - SINUS CONGESTION [None]
  - SNEEZING [None]
